FAERS Safety Report 19250542 (Version 1)
Quarter: 2021Q2

REPORT INFORMATION
  Report Type: Spontaneous
  Country: ES (occurrence: ES)
  Receive Date: 20210513
  Receipt Date: 20210513
  Transmission Date: 20210717
  Serious: Yes (Other)
  Sender: FDA-Public Use
  Company Number: ES-INSUD PHARMA-2104ES00539

PATIENT

DRUGS (12)
  1. NUVESSA [Suspect]
     Active Substance: METRONIDAZOLE
     Indication: EVIDENCE BASED TREATMENT
     Dosage: SWITCHED TO ORAL REGIMEN
     Route: 048
  2. DEXAMETHASONE. [Concomitant]
     Active Substance: DEXAMETHASONE
     Dosage: NEW COURSE OF CORTICOSTEROIDS
     Route: 065
  3. CEFTRIAXONE. [Concomitant]
     Active Substance: CEFTRIAXONE
     Indication: BRAIN ABSCESS
  4. LINEZOLID. [Concomitant]
     Active Substance: LINEZOLID
     Indication: EVIDENCE BASED TREATMENT
     Dosage: SWITCHED TO ORAL
     Route: 048
  5. CEFTAZIDIME. [Suspect]
     Active Substance: CEFTAZIDIME
     Indication: EVIDENCE BASED TREATMENT
     Dosage: 2 GRAM, TID, RESTARTED
     Route: 042
  6. CEFTAZIDIME. [Suspect]
     Active Substance: CEFTAZIDIME
     Indication: BRAIN ABSCESS
     Dosage: 2 GRAM, TID
     Route: 042
  7. LINEZOLID. [Concomitant]
     Active Substance: LINEZOLID
     Indication: BRAIN ABSCESS
     Dosage: 600 MILLIGRAM, TID
     Route: 042
  8. CIPROFLOXACIN. [Concomitant]
     Active Substance: CIPROFLOXACIN
     Indication: BRAIN ABSCESS
  9. DEXAMETHASONE. [Concomitant]
     Active Substance: DEXAMETHASONE
     Dosage: 4 MILLIGRAM, TID, TAPERED
     Route: 065
  10. NUVESSA [Suspect]
     Active Substance: METRONIDAZOLE
     Indication: BRAIN ABSCESS
     Dosage: 500 MILLIGRAM, QID
     Route: 042
  11. CEFTRIAXONE. [Concomitant]
     Active Substance: CEFTRIAXONE
     Indication: EVIDENCE BASED TREATMENT
     Dosage: 2 GRAM, BID
  12. CIPROFLOXACIN. [Concomitant]
     Active Substance: CIPROFLOXACIN
     Indication: EVIDENCE BASED TREATMENT
     Dosage: 750 MILLIGRAM, BID

REACTIONS (4)
  - Hepatotoxicity [Recovered/Resolved]
  - Liver disorder [Recovered/Resolved]
  - Decreased appetite [Unknown]
  - Abdominal discomfort [Unknown]
